FAERS Safety Report 10024782 (Version 1)
Quarter: 2014Q1

REPORT INFORMATION
  Report Type: Spontaneous
  Country: US (occurrence: None)
  Receive Date: 20140319
  Receipt Date: 20140319
  Transmission Date: 20141002
  Serious: Yes (Life-Threatening)
  Sender: FDA-Public Use
  Company Number: None

PATIENT
  Age: 74 Year
  Sex: Male
  Weight: 149.6 kg

DRUGS (2)
  1. FENTANYL [Suspect]
     Route: 042
     Dates: start: 20140307, end: 20140307
  2. MIDAZOLAM [Suspect]
     Route: 042
     Dates: start: 20140307, end: 20140307

REACTIONS (4)
  - Oxygen saturation decreased [None]
  - Unresponsive to stimuli [None]
  - Respiratory rate decreased [None]
  - Hypopnoea [None]
